FAERS Safety Report 5943409-7 (Version None)
Quarter: 2008Q4

REPORT INFORMATION
  Report Type: 
  Country: None (occurrence: None)
  Receive Date: 20081105
  Receipt Date: 20081105
  Transmission Date: 20090506
  Serious: Yes (Life-Threatening, Hospitalization)
  Sender: FDA-Public Use
  Company Number: None

PATIENT
  Age: 76 Year
  Sex: Male

DRUGS (8)
  1. LISINOPRIL [Suspect]
     Indication: HYPERTENSION
     Dosage: 40MG BID PO
     Route: 048
     Dates: start: 20030603, end: 20080925
  2. LISINOPRIL [Suspect]
     Indication: TYPE 2 DIABETES MELLITUS
     Dosage: 40MG BID PO
     Route: 048
     Dates: start: 20030603, end: 20080925
  3. ASPIRIN [Concomitant]
  4. METFORMIN HCL [Concomitant]
  5. HYDROCHLOROTHIAZIDE [Concomitant]
  6. PLENDIL [Concomitant]
  7. METOPROLOL TARTRATE [Concomitant]
  8. ZOCOR [Concomitant]

REACTIONS (1)
  - ANGIOEDEMA [None]
